FAERS Safety Report 4621861-7 (Version None)
Quarter: 2005Q1

REPORT INFORMATION
  Report Type: 
  Country: None (occurrence: None)
  Receive Date: 20050329
  Receipt Date: 20050301
  Transmission Date: 20050727
  Serious: Yes (Disabling)
  Sender: FDA-Public Use
  Company Number: RO-SANOFI-SYNTHELABO-A01200501334

PATIENT
  Sex: Male
  Weight: 78 kg

DRUGS (1)
  1. LOKREN [Suspect]
     Indication: VENTRICULAR EXTRASYSTOLES
     Route: 048
     Dates: start: 20050101, end: 20050301

REACTIONS (3)
  - MUSCLE CONTRACTIONS INVOLUNTARY [None]
  - MYALGIA [None]
  - RADICULOPATHY [None]
